FAERS Safety Report 14879600 (Version 1)
Quarter: 2018Q2

REPORT INFORMATION
  Report Type: Spontaneous
  Country: GB (occurrence: GB)
  Receive Date: 20180511
  Receipt Date: 20180511
  Transmission Date: 20180711
  Serious: Yes (Hospitalization, Other)
  Sender: FDA-Public Use
  Company Number: GB-UCBSA-2017047854

PATIENT
  Age: 47 Year
  Sex: Female
  Weight: 100 kg

DRUGS (16)
  1. DOCUSATE [Concomitant]
     Active Substance: DOCUSATE
     Indication: PRODUCT USED FOR UNKNOWN INDICATION
     Dosage: 200 MG, ONCE DAILY (QD) IN THE MORNING
  2. ESMYA [Suspect]
     Active Substance: ULIPRISTAL ACETATE
     Dosage: 5 MG DAILY
     Route: 048
     Dates: start: 201701, end: 2017
  3. FOLIC ACID. [Concomitant]
     Active Substance: FOLIC ACID
     Indication: PRODUCT USED FOR UNKNOWN INDICATION
     Dosage: 5 MG, ONCE DAILY (QD) EVERY MORNING
     Route: 048
  4. INDAPAMIDE. [Concomitant]
     Active Substance: INDAPAMIDE
     Indication: PRODUCT USED FOR UNKNOWN INDICATION
     Dosage: 1.5 MG, ONCE DAILY (QD) EVERY MORNING
     Route: 048
  5. TRANEXAMIC ACID. [Concomitant]
     Active Substance: TRANEXAMIC ACID
     Indication: PRODUCT USED FOR UNKNOWN INDICATION
     Dosage: 100 MG, 3 TIMES A DAY WHEN BLEEDING HEAVILY
  6. ULIPRISTAL ACETATE [Concomitant]
     Active Substance: ULIPRISTAL ACETATE
     Indication: UTERINE LEIOMYOMA
     Dosage: 5 MG, ONCE DAILY (QD) EVERY MORNING, 3 MONTHS ON, 1 MONTH OFF
     Route: 048
  7. ESMYA [Suspect]
     Active Substance: ULIPRISTAL ACETATE
     Indication: UTERINE LEIOMYOMA
     Dosage: 5 MG DAILY
     Route: 048
     Dates: start: 201608, end: 201612
  8. ESMYA [Suspect]
     Active Substance: ULIPRISTAL ACETATE
     Dosage: 5 MG, ONE DAY (56)
     Route: 048
     Dates: start: 201704, end: 201705
  9. ATORVASTATIN [Concomitant]
     Active Substance: ATORVASTATIN
     Indication: PRODUCT USED FOR UNKNOWN INDICATION
     Dosage: UNK
  10. FERROUS FUMARATE [Concomitant]
     Active Substance: FERROUS FUMARATE
     Indication: PRODUCT USED FOR UNKNOWN INDICATION
     Dosage: UNK MG, UNK
  11. KEPPRA [Suspect]
     Active Substance: LEVETIRACETAM
     Indication: EPILEPSY
     Dosage: 1500 MG DAILY
     Route: 048
     Dates: start: 201604
  12. SYMBICORT [Concomitant]
     Active Substance: BUDESONIDE\FORMOTEROL FUMARATE DIHYDRATE
     Indication: PRODUCT USED FOR UNKNOWN INDICATION
     Dosage: 4 DF, PUFFS, 200/6, RINSE MOUTH AFTER USE, TURBOHALER
     Route: 055
  13. METOCLOPRAMIDE. [Concomitant]
     Active Substance: METOCLOPRAMIDE
     Indication: PRODUCT USED FOR UNKNOWN INDICATION
     Dosage: AS NEEDED (PRN)
     Route: 048
  14. LANSOPRAZOLE. [Concomitant]
     Active Substance: LANSOPRAZOLE
     Indication: PRODUCT USED FOR UNKNOWN INDICATION
     Dosage: TAKE 30 TO 60 MINUTES BEFORE FOOD
     Route: 048
  15. VENTOLIN [Concomitant]
     Active Substance: ALBUTEROL SULFATE
     Indication: PRODUCT USED FOR UNKNOWN INDICATION
     Dosage: 200 ?G, MAXIMUM DOSE, 8 PUFFS IN 24 HOURS
     Route: 055
  16. LACTULOSE. [Concomitant]
     Active Substance: LACTULOSE
     Indication: PRODUCT USED FOR UNKNOWN INDICATION
     Dosage: 3.35G/5ML
     Route: 048

REACTIONS (17)
  - Hepatitis acute [Recovered/Resolved]
  - Ocular icterus [Unknown]
  - Lethargy [Unknown]
  - Liver function test abnormal [Recovered/Resolved]
  - Constipation [Unknown]
  - Dizziness [Unknown]
  - Angina pectoris [Unknown]
  - Fatigue [Not Recovered/Not Resolved]
  - Reflux gastritis [Unknown]
  - Chromaturia [Unknown]
  - Vomiting [Unknown]
  - Hiatus hernia [Unknown]
  - Nausea [Unknown]
  - Epstein-Barr virus infection [Unknown]
  - Helicobacter infection [Unknown]
  - Jaundice [Unknown]
  - Feeling abnormal [Unknown]

NARRATIVE: CASE EVENT DATE: 20170624
